FAERS Safety Report 9690885 (Version 1)
Quarter: 2013Q4

REPORT INFORMATION
  Report Type: Report from Study
  Country: MX (occurrence: MX)
  Receive Date: 20131115
  Receipt Date: 20131115
  Transmission Date: 20140711
  Serious: Yes (Other)
  Sender: FDA-Public Use
  Company Number: PHHY2013MX130679

PATIENT
  Age: 74 Year
  Sex: Female

DRUGS (3)
  1. DIOVAN [Suspect]
     Indication: HYPERTENSION
     Dosage: 160 MG, DAILY
     Route: 048
  2. EXFORGE [Suspect]
     Dosage: 160/5 MG, UNK
     Dates: start: 2008
  3. DILACORAN [Concomitant]
     Indication: CARDIAC DISORDER
     Dosage: 1 UKN, DAILY
     Dates: start: 2010

REACTIONS (4)
  - Asthma [Unknown]
  - Bronchitis [Unknown]
  - General physical health deterioration [Unknown]
  - Memory impairment [Unknown]
